FAERS Safety Report 10354886 (Version 1)
Quarter: 2014Q3

REPORT INFORMATION
  Report Type: Spontaneous
  Country: CH (occurrence: CH)
  Receive Date: 20140731
  Receipt Date: 20140731
  Transmission Date: 20150326
  Serious: Yes (Life-Threatening, Hospitalization)
  Sender: FDA-Public Use
  Company Number: CH-TEVA-496531ISR

PATIENT
  Age: 79 Year
  Sex: Male
  Weight: 71 kg

DRUGS (14)
  1. ALFUZOSIN [Suspect]
     Active Substance: ALFUZOSIN
     Indication: PROSTATE CANCER
     Dosage: 10 MILLIGRAM DAILY;
     Route: 048
     Dates: end: 20140706
  2. METO ZEROK 100 [Suspect]
     Active Substance: METOPROLOL SUCCINATE
     Indication: CORONARY ARTERY DISEASE
     Dosage: 100 MILLIGRAM DAILY;
     Route: 048
     Dates: end: 20140706
  3. AMOXICILLIN AND CLAVULANATE POTASSIUM [Concomitant]
     Active Substance: AMOXICILLIN\CLAVULANATE POTASSIUM
     Indication: PROSTATITIS
     Dosage: 1 DOSAGE FORMS DAILY;
     Route: 065
     Dates: start: 20140701, end: 20140701
  4. MEPHANOL [Suspect]
     Active Substance: ALLOPURINOL
     Indication: GOUT
     Dosage: 100 MILLIGRAM DAILY;
     Route: 048
     Dates: end: 20140706
  5. NEXIUM [Suspect]
     Active Substance: ESOMEPRAZOLE MAGNESIUM
     Dosage: 20 MILLIGRAM DAILY;
     Route: 048
     Dates: end: 20140706
  6. TOREM 5 [Suspect]
     Active Substance: TORSEMIDE
     Dosage: 10 MILLIGRAM DAILY;
     Route: 048
     Dates: end: 20140706
  7. SYMBICORT [Concomitant]
     Active Substance: BUDESONIDE\FORMOTEROL FUMARATE DIHYDRATE
     Dosage: 2 GTT DAILY;
     Route: 055
  8. ASPIRIN CARDIO [Concomitant]
     Active Substance: ASPIRIN
     Indication: CORONARY ARTERY DISEASE
     Dosage: 100 MILLIGRAM DAILY;
     Route: 048
  9. BACTRIM [Suspect]
     Active Substance: SULFAMETHOXAZOLE\TRIMETHOPRIM
     Indication: CYSTOSCOPY
     Dosage: 2 DOSAGE FORMS DAILY; 1 DF = 800MG SULFAMETHOXAZOL + 160MG TRIMETHOPRIM
     Route: 048
     Dates: start: 20140626, end: 20140701
  10. ALDACTONE [Suspect]
     Active Substance: SPIRONOLACTONE
     Dosage: 25 MILLIGRAM DAILY;
     Route: 048
     Dates: end: 20140706
  11. ACIDUM FOLICUM STREULI [Concomitant]
     Dosage: 5 MILLIGRAM DAILY;
     Route: 048
  12. PRAVALOTIN MEPHA [Suspect]
     Active Substance: PRAVASTATIN SODIUM
     Indication: CORONARY ARTERY DISEASE
     Dosage: 40 MILLIGRAM DAILY;
     Route: 048
     Dates: end: 20140706
  13. LISITRIL 5 [Suspect]
     Active Substance: LISINOPRIL
     Indication: CORONARY ARTERY DISEASE
     Dosage: 5 MILLIGRAM DAILY;
     Route: 048
     Dates: end: 20140706
  14. LANTUS [Concomitant]
     Active Substance: INSULIN GLARGINE
     Indication: INSULIN-REQUIRING TYPE 2 DIABETES MELLITUS
     Dosage: 6 IU (INTERNATIONAL UNIT) DAILY;
     Route: 058

REACTIONS (9)
  - Haematuria [Unknown]
  - Eosinophilia [Unknown]
  - Pyrexia [Unknown]
  - Dermatitis exfoliative [Recovering/Resolving]
  - Bacterial infection [Unknown]
  - Stevens-Johnson syndrome [Recovering/Resolving]
  - Hypophosphataemia [Unknown]
  - Acute myocardial infarction [Unknown]
  - Sepsis [Unknown]

NARRATIVE: CASE EVENT DATE: 201407
